FAERS Safety Report 6746892-2 (Version None)
Quarter: 2010Q2

REPORT INFORMATION
  Report Type: 
  Country: None (occurrence: None)
  Receive Date: 20100528
  Receipt Date: 20090928
  Transmission Date: 20101027
  Serious: No
  Sender: FDA-Public Use
  Company Number: US-ASTRAZENECA-2009SE32021

PATIENT
  Age: 69 Year
  Sex: Female

DRUGS (5)
  1. PRILOSEC OTC [Suspect]
     Indication: IRRITABLE BOWEL SYNDROME
     Route: 048
     Dates: start: 20090526, end: 20090928
  2. WARFARIN SODIUM [Concomitant]
     Dosage: UNKNOWN
  3. MULTI-VITAMINS [Concomitant]
     Dosage: UNKNOWN
  4. CALCIUM CARBONATE [Concomitant]
     Dosage: UNKNOWN
  5. TRANXENE [Concomitant]
     Dosage: UNKNOWN

REACTIONS (4)
  - DIPLOPIA [None]
  - HEADACHE [None]
  - MIGRAINE WITH AURA [None]
  - VISION BLURRED [None]
